FAERS Safety Report 23371524 (Version 1)
Quarter: 2024Q1

REPORT INFORMATION
  Report Type: Spontaneous
  Country: US (occurrence: US)
  Receive Date: 20240105
  Receipt Date: 20240105
  Transmission Date: 20240409
  Serious: Yes (Disabling, Other)
  Sender: FDA-Public Use
  Company Number: US-NOVOPROD-1159123

PATIENT

DRUGS (1)
  1. OZEMPIC [Suspect]
     Active Substance: SEMAGLUTIDE
     Indication: Diabetes mellitus
     Dosage: 2 MG, QW
     Route: 058

REACTIONS (9)
  - Disability [Unknown]
  - Wheelchair user [Unknown]
  - Suicidal ideation [Unknown]
  - Diabetic coma [Unknown]
  - Joint injury [Unknown]
  - Weight increased [Unknown]
  - Weight decreased [Unknown]
  - Constipation [Unknown]
  - Vomiting [Unknown]
